FAERS Safety Report 25870336 (Version 2)
Quarter: 2025Q4

REPORT INFORMATION
  Report Type: Spontaneous
  Country: PR (occurrence: PR)
  Receive Date: 20251001
  Receipt Date: 20251030
  Transmission Date: 20260118
  Serious: No
  Sender: PFIZER
  Company Number: PR-PFIZER INC-PV202500116953

PATIENT
  Age: 4 Year
  Sex: Female
  Weight: 17.4 kg

DRUGS (8)
  1. SOLU-MEDROL [Suspect]
     Active Substance: METHYLPREDNISOLONE SODIUM SUCCINATE
     Indication: Nasal congestion
     Dosage: UNK
  2. SOLU-MEDROL [Suspect]
     Active Substance: METHYLPREDNISOLONE SODIUM SUCCINATE
     Indication: Rhinorrhoea
  3. BACTERIOSTATIC SODIUM CHLORIDE [Suspect]
     Active Substance: SODIUM CHLORIDE
     Indication: Nasal congestion
     Dosage: UNK
  4. BACTERIOSTATIC SODIUM CHLORIDE [Suspect]
     Active Substance: SODIUM CHLORIDE
     Indication: Rhinorrhoea
  5. LORATADINE [Suspect]
     Active Substance: LORATADINE
     Indication: Nasal congestion
     Dosage: UNK
  6. LORATADINE [Suspect]
     Active Substance: LORATADINE
     Indication: Rhinorrhoea
  7. FAMOTIDINE [Suspect]
     Active Substance: FAMOTIDINE
     Indication: Nasal congestion
  8. FAMOTIDINE [Suspect]
     Active Substance: FAMOTIDINE
     Indication: Rhinorrhoea

REACTIONS (4)
  - Mental status changes [Unknown]
  - Chills [Unknown]
  - Respiratory disorder [Unknown]
  - Off label use [Unknown]

NARRATIVE: CASE EVENT DATE: 20250915
